FAERS Safety Report 13940383 (Version 1)
Quarter: 2017Q3

REPORT INFORMATION
  Report Type: Spontaneous
  Country: RU (occurrence: RU)
  Receive Date: 20170906
  Receipt Date: 20170906
  Transmission Date: 20171127
  Serious: Yes (Other)
  Sender: FDA-Public Use
  Company Number: RU-ASTRAZENECA-2017SE89582

PATIENT
  Age: 54 Year
  Sex: Male
  Weight: 93 kg

DRUGS (8)
  1. AMLODIPIN [Concomitant]
     Active Substance: AMLODIPINE BESYLATE
  2. BISOPROLOL [Concomitant]
     Active Substance: BISOPROLOL
  3. CARDIOMAGNIL [Concomitant]
  4. RIBOXIN [Concomitant]
     Active Substance: INOSINE
  5. TRENTAL [Concomitant]
     Active Substance: PENTOXIFYLLINE
  6. ROSUVASTATIN. [Concomitant]
     Active Substance: ROSUVASTATIN
  7. ACTOVEGIN [Concomitant]
     Active Substance: BLOOD, BOVINE
  8. BRILINTA [Suspect]
     Active Substance: TICAGRELOR
     Indication: MYOCARDIAL INFARCTION
     Route: 048
     Dates: start: 20160824

REACTIONS (4)
  - Off label use [Not Recovered/Not Resolved]
  - Intentional product use issue [Not Recovered/Not Resolved]
  - Contusion [Not Recovered/Not Resolved]
  - Type 2 diabetes mellitus [Not Recovered/Not Resolved]

NARRATIVE: CASE EVENT DATE: 20160824
